FAERS Safety Report 14988992 (Version 1)
Quarter: 2018Q2

REPORT INFORMATION
  Report Type: Spontaneous
  Country: TW (occurrence: TW)
  Receive Date: 20180608
  Receipt Date: 20180608
  Transmission Date: 20180711
  Serious: Yes (Hospitalization, Other)
  Sender: FDA-Public Use
  Company Number: TW-SA-2018SA127745

PATIENT
  Age: 62 Year
  Sex: Female

DRUGS (2)
  1. ISONIAZID. [Suspect]
     Active Substance: ISONIAZID
     Indication: LATENT TUBERCULOSIS
     Dosage: 300 MG, QW
     Route: 048
     Dates: start: 20180419, end: 20180428
  2. PRIFTIN [Suspect]
     Active Substance: RIFAPENTINE
     Indication: LATENT TUBERCULOSIS
     Dosage: 150 MG, QW
     Route: 048
     Dates: start: 20180419, end: 20180428

REACTIONS (5)
  - Blister [Not Recovered/Not Resolved]
  - Stevens-Johnson syndrome [Unknown]
  - Influenza like illness [Recovered/Resolved]
  - Rash [Not Recovered/Not Resolved]
  - Pyrexia [Recovered/Resolved]

NARRATIVE: CASE EVENT DATE: 20180419
